FAERS Safety Report 19731148 (Version 1)
Quarter: 2021Q3

REPORT INFORMATION
  Report Type: Report from Study
  Country: IE (occurrence: IE)
  Receive Date: 20210821
  Receipt Date: 20210821
  Transmission Date: 20211014
  Serious: Yes (Hospitalization)
  Sender: FDA-Public Use
  Company Number: IE-TAKEDA-IE201511565

PATIENT
  Age: 12 Year
  Sex: Male
  Weight: 32 kg

DRUGS (2)
  1. IDURSULFASE [Suspect]
     Active Substance: IDURSULFASE
     Dosage: 0.48 MILLIGRAM/KILOGRAM, 1/WEEK
     Route: 041
     Dates: start: 20160315
  2. IDURSULFASE [Suspect]
     Active Substance: IDURSULFASE
     Indication: MUCOPOLYSACCHARIDOSIS II
     Dosage: 0.5 MILLIGRAM/KILOGRAM, 1/WEEK
     Route: 041
     Dates: start: 20100518

REACTIONS (1)
  - Mucopolysaccharidosis II [Recovered/Resolved]

NARRATIVE: CASE EVENT DATE: 20150909
